FAERS Safety Report 10146378 (Version 3)
Quarter: 2015Q1

REPORT INFORMATION
  Report Type: Spontaneous
  Country: US (occurrence: US)
  Receive Date: 20140501
  Receipt Date: 20150116
  Transmission Date: 20150720
  Serious: Yes (Hospitalization, Other)
  Sender: FDA-Public Use
  Company Number: US-BAYER-2014-064148

PATIENT
  Age: 32 Year
  Sex: Female
  Weight: 81.63 kg

DRUGS (5)
  1. SEROQUEL [Concomitant]
     Active Substance: QUETIAPINE FUMARATE
     Indication: INSOMNIA
     Dosage: 50 MG, UNK
  2. WELLBUTRIN [Concomitant]
     Active Substance: BUPROPION HYDROCHLORIDE
     Indication: DEPRESSION
     Dosage: 300 MG, UNK
  3. LAMICTAL [Concomitant]
     Active Substance: LAMOTRIGINE
     Indication: BIPOLAR DISORDER
     Dosage: 300 MG, UNK
  4. ZANTAC [Concomitant]
     Active Substance: RANITIDINE HYDROCHLORIDE
     Indication: ABDOMINAL PAIN UPPER
     Dosage: 150 MG, UNK
  5. MIRENA [Suspect]
     Active Substance: LEVONORGESTREL
     Indication: CONTRACEPTION
     Dosage: 20 MCG/24HR, CONT
     Route: 015
     Dates: start: 20070209, end: 2009

REACTIONS (11)
  - Injury [None]
  - Emotional distress [None]
  - Depression [None]
  - Premature delivery [None]
  - Uterine perforation [None]
  - Pain [None]
  - Preterm premature rupture of membranes [None]
  - Anxiety [None]
  - Pregnancy with contraceptive device [None]
  - Anhedonia [None]
  - Activities of daily living impaired [None]

NARRATIVE: CASE EVENT DATE: 2008
